FAERS Safety Report 16667071 (Version 1)
Quarter: 2019Q3

REPORT INFORMATION
  Report Type: Spontaneous
  Country: GB (occurrence: GB)
  Receive Date: 20190805
  Receipt Date: 20190805
  Transmission Date: 20191004
  Serious: Yes (Hospitalization)
  Sender: FDA-Public Use
  Company Number: GB-AXELLIA-002614

PATIENT
  Age: 82 Year
  Sex: Male

DRUGS (8)
  1. DAPTOMYCIN. [Suspect]
     Active Substance: DAPTOMYCIN
     Indication: INTERVERTEBRAL DISCITIS
     Route: 042
     Dates: start: 20190524, end: 20190609
  2. IRON [Concomitant]
     Active Substance: IRON
  3. BUMETANIDE. [Concomitant]
     Active Substance: BUMETANIDE
  4. LINAGLIPTIN [Concomitant]
     Active Substance: LINAGLIPTIN
  5. DIGOXIN. [Concomitant]
     Active Substance: DIGOXIN
  6. SODIUM BICARBONATE. [Concomitant]
     Active Substance: SODIUM BICARBONATE
  7. CANDESARTAN. [Concomitant]
     Active Substance: CANDESARTAN
  8. APIXABAN [Concomitant]
     Active Substance: APIXABAN

REACTIONS (2)
  - Pulmonary congestion [Recovering/Resolving]
  - Eosinophilic pneumonia [Recovering/Resolving]

NARRATIVE: CASE EVENT DATE: 20190608
